FAERS Safety Report 23130800 (Version 2)
Quarter: 2024Q1

REPORT INFORMATION
  Report Type: Spontaneous
  Country: PL (occurrence: PL)
  Receive Date: 20231031
  Receipt Date: 20240205
  Transmission Date: 20240409
  Serious: Yes (Other)
  Sender: FDA-Public Use
  Company Number: PL-KRKA-PL2023K00348LIT

PATIENT
  Age: 19 Year
  Sex: Male

DRUGS (10)
  1. CYCLOPHOSPHAMIDE [Suspect]
     Active Substance: CYCLOPHOSPHAMIDE
     Indication: High grade B-cell lymphoma Burkitt-like lymphoma
     Dosage: UNK, Q3W
     Route: 065
     Dates: start: 2020
  2. CYTARABINE [Suspect]
     Active Substance: CYTARABINE
     Dosage: UNK UNK, Q3W
     Route: 065
     Dates: start: 2020
  3. CYTARABINE [Suspect]
     Active Substance: CYTARABINE
     Indication: High grade B-cell lymphoma Burkitt-like lymphoma
     Dosage: UNK 4 CYCLES
     Route: 065
  4. DEXAMETHASONE [Suspect]
     Active Substance: DEXAMETHASONE
     Indication: High grade B-cell lymphoma Burkitt-like lymphoma
     Dosage: UNK UNK, Q3W
     Route: 065
     Dates: start: 2020
  5. DEXAMETHASONE [Suspect]
     Active Substance: DEXAMETHASONE
     Dosage: UNK (4 CYCLES)
     Route: 065
  6. DOXORUBICIN [Suspect]
     Active Substance: DOXORUBICIN
     Indication: High grade B-cell lymphoma Burkitt-like lymphoma
     Dosage: UNK UNK, Q3
     Route: 065
     Dates: start: 2020
  7. METHOTREXATE [Suspect]
     Active Substance: METHOTREXATE
     Indication: High grade B-cell lymphoma Burkitt-like lymphoma
     Dosage: UNK, Q3W
     Route: 065
     Dates: start: 2020
  8. METHOTREXATE [Suspect]
     Active Substance: METHOTREXATE
     Dosage: 4 CYCLES
     Route: 065
     Dates: start: 2020
  9. RITUXIMAB [Suspect]
     Active Substance: RITUXIMAB
     Indication: High grade B-cell lymphoma Burkitt-like lymphoma
     Dosage: UNK, Q3W
     Route: 065
     Dates: start: 2020
  10. VINCRISTINE [Suspect]
     Active Substance: VINCRISTINE
     Indication: High grade B-cell lymphoma Burkitt-like lymphoma
     Dosage: UNK UNK, Q3W
     Route: 065
     Dates: start: 2020

REACTIONS (1)
  - Myelosuppression [Unknown]
